FAERS Safety Report 4905311-9 (Version None)
Quarter: 2006Q1

REPORT INFORMATION
  Report Type: 
  Country: None (occurrence: None)
  Receive Date: 20060203
  Receipt Date: 20060123
  Transmission Date: 20060701
  Serious: Yes (Hospitalization)
  Sender: FDA-Public Use
  Company Number: 217499

PATIENT
  Age: 58 Year
  Sex: Female
  Weight: 55 kg

DRUGS (9)
  1. MABTHERA (RITUXIMAB) CONC FOR SOLUTION FOR INFUSION [Suspect]
     Indication: NON-HODGKIN'S LYMPHOMA
     Dosage: 386 MG, INTRAVENOUS
     Route: 042
     Dates: start: 20050518, end: 20050524
  2. IBRITUMOMAB TIUXETAN (BRITUMOMAB TIUXETAN) [Suspect]
     Indication: NON-HODGKIN'S LYMPHOMA
     Dates: start: 20050518, end: 20050524
  3. YTTRIUM CHLORIDE HEXAHYDRATE (YTTRIUM-90) [Suspect]
     Indication: NON-HODGKIN'S LYMPHOMA
     Dosage: 16.4 MCI
     Dates: start: 20050518, end: 20050524
  4. INDIUM TRICHLORIDE (INDIUM-111) [Suspect]
     Indication: NON-HODGKIN'S LYMPHOMA
     Dosage: 3.5 MCI
     Dates: start: 20050518, end: 20050524
  5. BLOPRESS (CANDESARTAN CILEXETIL) [Concomitant]
  6. ADONA (CARBAZOCHROME SODIUM SULFONATE) [Concomitant]
  7. MUCOSTA (REBAMIPIDE) [Concomitant]
  8. HICEE (ASCORBIC ACID) [Concomitant]
  9. CIPROXIN (CIPROFLOXACIN) [Concomitant]

REACTIONS (8)
  - ALANINE AMINOTRANSFERASE INCREASED [None]
  - HAEMATOCRIT DECREASED [None]
  - HAEMOGLOBIN DECREASED [None]
  - NEUTROPHIL COUNT DECREASED [None]
  - PETECHIAE [None]
  - PLATELET COUNT DECREASED [None]
  - RED BLOOD CELL COUNT DECREASED [None]
  - WHITE BLOOD CELL COUNT DECREASED [None]
